FAERS Safety Report 8145096-9 (Version None)
Quarter: 2012Q1

REPORT INFORMATION
  Report Type: 
  Country: None (occurrence: None)
  Receive Date: 20120217
  Receipt Date: 20120211
  Transmission Date: 20120608
  Serious: Yes (Hospitalization, Other)
  Sender: FDA-Public Use
  Company Number: PHHY2012NL012071

PATIENT
  Sex: Male

DRUGS (2)
  1. ZOMETA [Suspect]
     Indication: PROSTATE CANCER METASTATIC
     Dosage: 4 MG/ 100 ML ONCE PER 28 DAYS
     Dates: start: 20080121
  2. ZOMETA [Suspect]
     Dosage: 4 MG/ 100 ML ONCE PER 28 DAYS
     Dates: start: 20120117

REACTIONS (6)
  - BACK PAIN [None]
  - NAUSEA [None]
  - VOMITING [None]
  - CANCER PAIN [None]
  - DECREASED APPETITE [None]
  - PROSTATIC SPECIFIC ANTIGEN INCREASED [None]
